FAERS Safety Report 24712455 (Version 4)
Quarter: 2025Q1

REPORT INFORMATION
  Report Type: Report from Study
  Country: US (occurrence: US)
  Receive Date: 20241209
  Receipt Date: 20250319
  Transmission Date: 20250409
  Serious: Yes (Other)
  Sender: NOVARTIS
  Company Number: US-002147023-NVSC2024US063466

PATIENT
  Age: 33 Year
  Sex: Female

DRUGS (1)
  1. KESIMPTA [Suspect]
     Active Substance: OFATUMUMAB
     Indication: Product used for unknown indication
     Dosage: UNK, QW
     Route: 065
     Dates: start: 20240316

REACTIONS (31)
  - Polycystic ovarian syndrome [Not Recovered/Not Resolved]
  - Pain [Unknown]
  - Chills [Unknown]
  - Arthralgia [Unknown]
  - Headache [Unknown]
  - Energy increased [Unknown]
  - Dizziness [Unknown]
  - Grip strength decreased [Unknown]
  - Muscular weakness [Unknown]
  - Influenza like illness [Unknown]
  - Nasopharyngitis [Unknown]
  - Sinusitis [Unknown]
  - Ear pain [Unknown]
  - Pain in jaw [Unknown]
  - Limb discomfort [Unknown]
  - Drug ineffective [Unknown]
  - Gait disturbance [Unknown]
  - Hypoaesthesia [Unknown]
  - Formication [Unknown]
  - Scratch [Unknown]
  - Scab [Unknown]
  - Memory impairment [Unknown]
  - Alopecia [Unknown]
  - Weight increased [Unknown]
  - Blood glucose abnormal [Unknown]
  - Fatigue [Unknown]
  - Vitamin D deficiency [Unknown]
  - Injection site pain [Unknown]
  - Sensitivity to weather change [Unknown]
  - Pruritus [Recovering/Resolving]
  - Glucose tolerance impaired [Unknown]

NARRATIVE: CASE EVENT DATE: 20240322
